FAERS Safety Report 13177335 (Version 1)
Quarter: 2017Q1

REPORT INFORMATION
  Report Type: Report from Study
  Country: US (occurrence: US)
  Receive Date: 20170201
  Receipt Date: 20170201
  Transmission Date: 20170428
  Serious: Yes (Other)
  Sender: FDA-Public Use
  Company Number: US-EXELIXIS-CABO-15005844

PATIENT
  Sex: Male

DRUGS (2)
  1. COMETRIQ [Suspect]
     Active Substance: CABOZANTINIB S-MALATE
     Indication: THYROID CANCER
     Dosage: 60 MG, QD
     Route: 048
     Dates: start: 20151111, end: 20151203
  2. COMETRIQ [Suspect]
     Active Substance: CABOZANTINIB S-MALATE
     Dosage: 40 MG, QD
     Route: 048
     Dates: start: 201512, end: 201601

REACTIONS (19)
  - Balance disorder [Unknown]
  - Stomatitis [Unknown]
  - Oropharyngeal pain [Unknown]
  - Blood calcium decreased [Unknown]
  - Delirium [Unknown]
  - Aphthous ulcer [Unknown]
  - Mucosal inflammation [Unknown]
  - Dysphagia [Unknown]
  - Abnormal behaviour [Not Recovered/Not Resolved]
  - Confusional state [Not Recovered/Not Resolved]
  - Aspiration [Unknown]
  - Fatigue [Not Recovered/Not Resolved]
  - Hypersomnia [Unknown]
  - Secretion discharge [Recovering/Resolving]
  - Localised oedema [Unknown]
  - Laceration [Unknown]
  - Pharyngeal ulceration [Unknown]
  - Pneumonia [Unknown]
  - Fall [Unknown]
